FAERS Safety Report 8344480-8 (Version None)
Quarter: 2012Q2

REPORT INFORMATION
  Report Type: 
  Country: None (occurrence: None)
  Receive Date: 20120508
  Receipt Date: 19870302
  Transmission Date: 20120825
  Serious: Yes (Death, Hospitalization)
  Sender: FDA-Public Use
  Company Number: IT-ROCHE-10555

PATIENT
  Age: 74 Year

DRUGS (5)
  1. TICLID [Suspect]
     Indication: PRODUCT USED FOR UNKNOWN INDICATION
     Route: 065
     Dates: start: 19860928, end: 19861230
  2. CANRENOATE POTASSIUM [Concomitant]
  3. FUROSEMIDE [Concomitant]
  4. RANITIDINE [Concomitant]
  5. GENERIC COMPONENT(S) NOT KNOWN [Concomitant]

REACTIONS (7)
  - BONE MARROW FAILURE [None]
  - HEMIPARESIS [None]
  - CEREBRAL ISCHAEMIA [None]
  - PYREXIA [None]
  - HEMIANOPIA [None]
  - EPILEPSY [None]
  - PERINEAL PAIN [None]
